FAERS Safety Report 8113356-3 (Version None)
Quarter: 2012Q1

REPORT INFORMATION
  Report Type: 
  Country: None (occurrence: None)
  Receive Date: 20120203
  Receipt Date: 20120131
  Transmission Date: 20120608
  Serious: Yes (Hospitalization, Other)
  Sender: FDA-Public Use
  Company Number: PHHY2012LT007943

PATIENT
  Sex: Male

DRUGS (11)
  1. DICLOFENAC [Concomitant]
     Dosage: 75 MG, UNK
     Route: 030
  2. EYE DROPS [Concomitant]
     Dosage: UNK UKN, UNK
  3. FERROUS SULFATE TAB [Concomitant]
     Dosage: UNK UKN, UNK
  4. MICARDIS [Concomitant]
     Dosage: UNK UKN, UNK
  5. CORDARONE [Concomitant]
     Dosage: UNK UKN, UNK
  6. PROPAFENONE HCL [Concomitant]
     Dosage: UNK UKN, UNK
  7. MELOXICAM [Concomitant]
     Dosage: UNK UKN, UNK
  8. ZOLEDRONOC ACID [Suspect]
     Route: 042
     Dates: start: 20120125
  9. KETOPROFEN [Concomitant]
     Dosage: 100 MG/ML, UNK
  10. PENESTER [Concomitant]
     Dosage: UNK UKN, UNK
  11. OMEPRAZOLE [Concomitant]
     Dosage: UNK UKN, UNK

REACTIONS (5)
  - RESPIRATORY FAILURE [None]
  - FACE OEDEMA [None]
  - PNEUMONIA [None]
  - BRONCHOSPASM [None]
  - ANGIOEDEMA [None]
